FAERS Safety Report 9028786 (Version 1)
Quarter: 2013Q1

REPORT INFORMATION
  Report Type: Spontaneous
  Country: US (occurrence: US)
  Receive Date: 20130124
  Receipt Date: 20130124
  Transmission Date: 20140127
  Serious: No
  Sender: FDA-Public Use
  Company Number: US-BAUSCH-2012BL003943

PATIENT
  Age: 58 Year
  Sex: Female
  Weight: 52.21 kg

DRUGS (2)
  1. ALAWAY [Suspect]
     Indication: HYPERSENSITIVITY
     Dosage: ONE DROP IN EACH EYE DAILY
     Route: 047
     Dates: start: 20120521, end: 20120523
  2. GEMFIBROZIL [Concomitant]
     Indication: BLOOD CHOLESTEROL

REACTIONS (2)
  - Conjunctivitis [Not Recovered/Not Resolved]
  - Visual acuity reduced [Not Recovered/Not Resolved]
